FAERS Safety Report 9413810 (Version 1)
Quarter: 2013Q3

REPORT INFORMATION
  Report Type: Spontaneous
  Country: GB (occurrence: GB)
  Receive Date: 20130723
  Receipt Date: 20130723
  Transmission Date: 20140515
  Serious: Yes (Life-Threatening, Hospitalization)
  Sender: FDA-Public Use
  Company Number: PHFR2013GB004190

PATIENT
  Age: 65 Year
  Sex: Female
  Weight: 73 kg

DRUGS (11)
  1. CLOZAPINE [Suspect]
     Dosage: UNK
     Route: 048
  2. CLOZAPINE [Suspect]
     Dosage: 300 MG
     Route: 048
     Dates: start: 20130331, end: 20130415
  3. METFORMIN [Concomitant]
  4. ALENDRONIC ACID [Concomitant]
  5. BENDROFLUMETHIAZIDE [Concomitant]
  6. CLOPIDOGREL [Concomitant]
  7. TIOTROPIUM [Concomitant]
  8. PRAVASTATIN [Concomitant]
  9. SERETIDE [Concomitant]
  10. LANSOPRAZOLE [Concomitant]
  11. ADCAL-D3 [Concomitant]

REACTIONS (3)
  - Neutropenia [Recovered/Resolved]
  - C-reactive protein increased [Recovered/Resolved]
  - White blood cell count decreased [Recovered/Resolved]
